FAERS Safety Report 6371231-9 (Version None)
Quarter: 2009Q3

REPORT INFORMATION
  Report Type: 
  Country: None (occurrence: None)
  Receive Date: 20090923
  Receipt Date: 20070515
  Transmission Date: 20100115
  Serious: Yes (Other)
  Sender: FDA-Public Use
  Company Number: US-ASTRAZENECA-2007UW04081

PATIENT
  Age: 51 Year
  Sex: Female
  Weight: 71.2 kg

DRUGS (23)
  1. SEROQUEL [Suspect]
     Indication: DEPRESSION
     Dosage: 400-600 MG
     Route: 048
     Dates: start: 20010831
  2. SEROQUEL [Suspect]
     Indication: ANXIETY
     Dosage: 400-600 MG
     Route: 048
     Dates: start: 20010831
  3. SEROQUEL [Suspect]
     Indication: PSYCHOTIC DISORDER
     Dosage: 400-600 MG
     Route: 048
     Dates: start: 20010831
  4. ABILIFY [Concomitant]
  5. CLOZARIL [Concomitant]
  6. GEODON [Concomitant]
  7. RISPERDAL [Concomitant]
  8. STELAZINE [Concomitant]
  9. THORAZINE [Concomitant]
  10. TRILAFON [Concomitant]
  11. ZYPREXA [Concomitant]
  12. MS CONTIN [Concomitant]
     Dates: start: 20011012
  13. DANTROLENE SODIUM [Concomitant]
     Route: 048
     Dates: start: 19981026
  14. GEMFIBROZIL [Concomitant]
     Indication: BLOOD CHOLESTEROL ABNORMAL
     Dates: start: 19980805
  15. NEURONTIN [Concomitant]
     Indication: BIPOLAR DISORDER
     Dosage: 300-1200 MG
     Route: 048
     Dates: start: 20010108
  16. CELEXA [Concomitant]
     Dosage: 20-40 MG AT NIGHT
     Route: 048
     Dates: start: 20010108
  17. ATENOLOL [Concomitant]
     Indication: CARDIAC DISORDER
     Dosage: 50-80 MG DAILY
     Route: 048
     Dates: start: 20000425
  18. LEVETIRACETAM [Concomitant]
     Dosage: 500-2500 MG
     Route: 048
  19. CLONAZEPAM [Concomitant]
     Indication: BIPOLAR DISORDER
     Dosage: 0.5-3 MG
     Route: 048
     Dates: start: 20010108
  20. CLONAZEPAM [Concomitant]
     Indication: ANXIETY
     Dosage: 0.5-3 MG
     Route: 048
     Dates: start: 20010108
  21. DILANTIN [Concomitant]
     Dosage: 500-800 MG
     Route: 048
     Dates: start: 20010108
  22. LEVOTHYROXINE SODIUM [Concomitant]
     Dosage: 0.05-0.1 MG
     Route: 048
     Dates: start: 19960509
  23. ZOMIG [Concomitant]
     Indication: MIGRAINE
     Dosage: 2.5 MG
     Dates: start: 20051024

REACTIONS (3)
  - DIABETES MELLITUS [None]
  - TARDIVE DYSKINESIA [None]
  - TYPE 2 DIABETES MELLITUS [None]
